FAERS Safety Report 15314942 (Version 1)
Quarter: 2018Q3

REPORT INFORMATION
  Report Type: Report from Study
  Country: TH (occurrence: TH)
  Receive Date: 20180824
  Receipt Date: 20180824
  Transmission Date: 20181010
  Serious: Yes (Death, Hospitalization, Other)
  Sender: FDA-Public Use
  Company Number: TH-ASTRAZENECA-2018SE48004

PATIENT
  Age: 69 Year
  Sex: Male

DRUGS (1)
  1. IRESSA [Suspect]
     Active Substance: GEFITINIB
     Route: 048
     Dates: start: 201801, end: 201804

REACTIONS (6)
  - Death [Fatal]
  - Fatigue [Unknown]
  - Coordination abnormal [Unknown]
  - Depression [Unknown]
  - Tremor [Unknown]
  - Intracranial mass [Unknown]

NARRATIVE: CASE EVENT DATE: 201804
